FAERS Safety Report 4608113-6 (Version None)
Quarter: 2005Q1

REPORT INFORMATION
  Report Type: 
  Country: None (occurrence: None)
  Receive Date: 20050314
  Receipt Date: 20041025
  Transmission Date: 20050727
  Serious: Yes (Hospitalization)
  Sender: FDA-Public Use
  Company Number: US-MERCK-0410USA03767

PATIENT
  Age: 65 Year
  Sex: Female

DRUGS (4)
  1. VIOXX [Suspect]
     Indication: ARTHRALGIA
     Route: 048
     Dates: start: 20000101, end: 20000101
  2. VIOXX [Suspect]
     Indication: JOINT SWELLING
     Route: 048
     Dates: start: 20000101, end: 20000101
  3. PRILOSEC [Concomitant]
     Route: 065
  4. PRAVACHOL [Concomitant]
     Route: 065

REACTIONS (7)
  - CHEST PAIN [None]
  - DIZZINESS [None]
  - GASTROOESOPHAGEAL REFLUX DISEASE [None]
  - HYPOACUSIS [None]
  - MIDDLE EAR EFFUSION [None]
  - SYNOVITIS [None]
  - TINNITUS [None]
